FAERS Safety Report 6451052-9 (Version None)
Quarter: 2009Q4

REPORT INFORMATION
  Report Type: 
  Country: None (occurrence: None)
  Receive Date: 20091123
  Receipt Date: 20091113
  Transmission Date: 20100525
  Serious: Yes (Hospitalization)
  Sender: FDA-Public Use
  Company Number: GXKR2009FR12484

PATIENT
  Sex: Male

DRUGS (5)
  1. CITALOPRAM HYDROBROMIDE [Suspect]
     Route: 065
  2. OXAZEPAM [Suspect]
     Route: 065
  3. CYAMEMAZINE [Suspect]
     Route: 065
  4. TRIMEPRAZINE TAB [Suspect]
     Route: 065
  5. VALPROIC ACID [Suspect]
     Route: 065

REACTIONS (10)
  - AFFECT LABILITY [None]
  - ATAXIA [None]
  - CONFUSIONAL STATE [None]
  - EXTENSOR PLANTAR RESPONSE [None]
  - HYPOKINESIA [None]
  - HYPONATRAEMIA [None]
  - OSMOTIC DEMYELINATION SYNDROME [None]
  - REHABILITATION THERAPY [None]
  - SOMNOLENCE [None]
  - URINE SODIUM INCREASED [None]
